FAERS Safety Report 11596881 (Version 1)
Quarter: 2015Q4

REPORT INFORMATION
  Report Type: Spontaneous
  Country: US (occurrence: None)
  Receive Date: 20151005
  Receipt Date: 20151005
  Transmission Date: 20160304
  Serious: Yes (Disabling)
  Sender: FDA-Public Use
  Company Number: None

PATIENT
  Age: 29 Year
  Sex: Female
  Weight: 61.24 kg

DRUGS (3)
  1. LEVOFLOXACIN 500MG AUROBINDO PHARMACEUTICAL [Suspect]
     Active Substance: LEVOFLOXACIN
     Indication: SINUSITIS
     Route: 048
     Dates: start: 20130201, end: 20130203
  2. PRENISONE 10MG ROXANE LABS [Concomitant]
     Active Substance: PREDNISONE
     Dosage: 1 PILL
     Route: 048
     Dates: start: 20130201, end: 20130203
  3. LEVOFLOXACIN 500MG AUROBINDO PHARMACEUTICAL [Suspect]
     Active Substance: LEVOFLOXACIN
     Indication: EAR INFECTION
     Route: 048
     Dates: start: 20130201, end: 20130203

REACTIONS (13)
  - Muscle spasms [None]
  - Gait disturbance [None]
  - Tendon pain [None]
  - Tinnitus [None]
  - Nerve injury [None]
  - Pain in extremity [None]
  - Abdominal pain upper [None]
  - Musculoskeletal chest pain [None]
  - Joint lock [None]
  - Ear discomfort [None]
  - Neuropathy peripheral [None]
  - Abdominal pain [None]
  - Back pain [None]

NARRATIVE: CASE EVENT DATE: 20130203
